FAERS Safety Report 12460658 (Version 5)
Quarter: 2016Q3

REPORT INFORMATION
  Report Type: Report from Study
  Country: CZ (occurrence: CZ)
  Receive Date: 20160613
  Receipt Date: 20160901
  Transmission Date: 20161109
  Serious: Yes (Death, Hospitalization)
  Sender: FDA-Public Use
  Company Number: CZ-AMGEN-CZECT2016058403

PATIENT
  Age: 62 Year
  Sex: Female

DRUGS (8)
  1. VALACICLOVIR [Concomitant]
     Active Substance: VALACYCLOVIR HYDROCHLORIDE
     Dosage: 500 MG, UNK
     Route: 048
     Dates: start: 20160429, end: 20160505
  2. LANZUL [Concomitant]
     Active Substance: LANSOPRAZOLE
     Dosage: 15 MG, UNK
     Route: 048
     Dates: start: 20160429, end: 20160505
  3. ZOLEDRONIC ACID [Concomitant]
     Active Substance: ZOLEDRONIC ACID
     Dosage: 4 MG, UNK
     Route: 042
     Dates: start: 20160311, end: 20160525
  4. OMEPRAZOLE                         /00661202/ [Concomitant]
     Dosage: 20 MG, UNK
     Route: 048
     Dates: start: 20160422, end: 20160425
  5. CARFILZOMIB [Suspect]
     Active Substance: CARFILZOMIB
     Indication: PLASMA CELL MYELOMA
     Dosage: 32 MG, PER CHEMO REGIM
     Route: 042
     Dates: start: 20160429, end: 20160429
  6. SODIUM CHLORIDE. [Concomitant]
     Active Substance: SODIUM CHLORIDE
     Dosage: 1 UNK, UNK
     Route: 048
     Dates: start: 201601, end: 20160525
  7. DEXAMETHASONE. [Suspect]
     Active Substance: DEXAMETHASONE
     Indication: PLASMA CELL MYELOMA
     Dosage: 40 MG, PER CHEMO REGIM
     Route: 042
     Dates: start: 20160429, end: 20160429
  8. ZOLPIDEM [Concomitant]
     Active Substance: ZOLPIDEM\ZOLPIDEM TARTRATE
     Dosage: 10 MG, UNK
     Route: 048
     Dates: start: 20160422, end: 20160525

REACTIONS (2)
  - Sepsis [Fatal]
  - Pneumonia bacterial [Recovered/Resolved]

NARRATIVE: CASE EVENT DATE: 20160505
